FAERS Safety Report 5579581-0 (Version None)
Quarter: 2008Q1

REPORT INFORMATION
  Report Type: 
  Country: None (occurrence: None)
  Receive Date: 20080102
  Receipt Date: 20071224
  Transmission Date: 20080703
  Serious: Yes (Hospitalization)
  Sender: FDA-Public Use
  Company Number: US-SANOFI-SYNTHELABO-A03200703459

PATIENT
  Sex: Female
  Weight: 68 kg

DRUGS (59)
  1. PLAVIX [Suspect]
     Indication: ARTERIAL STENT INSERTION
     Route: 048
     Dates: start: 20031029, end: 20060616
  2. SODIUM CHLORIDE [Concomitant]
     Route: 042
  3. ADVAIR DISKUS 100/50 [Concomitant]
     Dosage: 250/50 ONE INHALATION AT BEDTIME
     Route: 055
  4. DULCOLAX [Concomitant]
     Route: 054
  5. COMPAZINE [Concomitant]
     Dosage: 5 MG EVERY 4-6 HOURS AS NEEDED
     Route: 030
  6. TIGAN [Concomitant]
     Dosage: 200 MG EVERY 6-8 HOURS AS NEEDED
     Route: 054
  7. TIGAN [Concomitant]
     Dosage: 250 MG ORAL EVERY 8 HOURS PRN
     Route: 048
  8. TEMAZEPAM [Concomitant]
     Route: 048
  9. ATIVAN [Concomitant]
     Dosage: 1 MG EVERY 12 HOURS AS NEEDED
     Route: 048
  10. MILK OF MAGNESIA [Concomitant]
     Dosage: 30-60 ML AS NEEDED
     Route: 048
  11. TYLENOL [Concomitant]
     Dosage: 325 MG (TWO TABLETS) EVERY 4 HOURS AS NEEDED
     Route: 048
  12. PROPOXYPHENE NAPSYLATE [Concomitant]
     Dosage: EVERY 4 HOURS WHEN NEEDED
     Route: 048
  13. ALBUTEROL [Concomitant]
     Dosage: UNIT DOSE EVERY 4 HOURS WHILE AWAKE
     Route: 055
  14. ACETAMINOPHEN [Concomitant]
     Dosage: 650 MG EVERY 4 HOURS AS NEEDED
     Route: 054
  15. PERCOCET [Concomitant]
     Dosage: 1-2 TABLETS EVERY 4-6 HOURS PAIN
     Route: 048
  16. CORDARONE [Concomitant]
     Route: 048
  17. MAGNESIUM [Concomitant]
     Route: 048
  18. TRUSOPT [Concomitant]
     Route: 047
  19. TIMOPTIC [Concomitant]
     Route: 047
  20. XALATAN [Concomitant]
     Route: 047
  21. K-DUR 10 [Concomitant]
     Route: 048
  22. LASIX [Concomitant]
     Route: 048
  23. DOCUSATE [Concomitant]
     Route: 048
  24. XANAX [Concomitant]
     Route: 048
  25. XANAX [Concomitant]
     Dosage: 0.25 MG HS PRN
     Route: 048
     Dates: start: 20060525
  26. MYCOSTATIN [Concomitant]
     Route: 048
  27. PEPCID [Concomitant]
     Route: 048
  28. FERROUS SULFATE TAB [Concomitant]
     Route: 048
  29. HEXAVITAMIN [Concomitant]
     Route: 048
  30. LOVENOX [Concomitant]
     Route: 058
  31. TENORMIN [Concomitant]
     Route: 048
  32. LEVAQUIN [Concomitant]
     Route: 048
  33. NOVOLIN R [Concomitant]
     Dosage: THREE TIMES DAILY BEFORE MEALS (SLIDING SCALE)
     Route: 058
  34. NOVOLIN N [Concomitant]
     Dosage: HS (SLIDING SCALE)
     Route: 058
  35. NITROGLYCERIN [Concomitant]
     Dosage: 0.4 MG TABLET EVERY 5 MIN. X 3 FOR CHEST PAIN AS NEEDED
     Route: 060
  36. IMDUR [Concomitant]
     Route: 048
  37. ECOTRIN [Concomitant]
     Route: 048
  38. PREMARIN [Concomitant]
     Route: 067
     Dates: start: 20051229
  39. OMEGA FISH OIL [Concomitant]
     Route: 048
  40. AMARYL [Concomitant]
     Route: 048
     Dates: start: 20060427
  41. ANTIVERT [Concomitant]
     Route: 048
     Dates: start: 20060616
  42. SIMVASTATIN [Concomitant]
     Route: 048
     Dates: start: 20051007
  43. EZETIMIBE [Concomitant]
     Route: 048
     Dates: start: 20051007
  44. TENORMIN [Concomitant]
     Route: 048
     Dates: start: 20050801
  45. TENORMIN [Concomitant]
     Route: 048
  46. ERYTHROMYCIN [Concomitant]
     Dosage: 250 MG ORAL FOUR TIMES DAILY FOR ONE WEEK
     Route: 048
     Dates: start: 20040301, end: 20040301
  47. TESSALON PRO [Concomitant]
     Dosage: 100-200 MG ORAL THREE TIMES DAILY PRN
     Route: 048
  48. THERAGRAN M [Concomitant]
     Route: 048
  49. ZINC SULFATE [Concomitant]
     Route: 048
  50. ASCORBIC ACID [Concomitant]
     Route: 048
  51. SENOKOT [Concomitant]
     Route: 048
  52. MAALOX PLUS [Concomitant]
     Dosage: 30 ML EVERY 6 HOURS PRN
     Route: 048
  53. IMODIUM [Concomitant]
     Dosage: 4 MG ORAL FOUR TIMES DAILY PRN
     Route: 048
  54. RESTORIL [Concomitant]
     Dosage: 15 MG ORAL AT BEDTIME PRN
     Route: 048
  55. ATIVAN [Concomitant]
     Dosage: 1 MG ORAL EVERY 12 HOURS PRN
     Route: 048
  56. REGULAR INSULIN [Concomitant]
     Dosage: SLIDING SCALE COVERAGE
     Route: 058
  57. LASIX [Concomitant]
     Route: 048
  58. COUMADIN [Concomitant]
     Route: 048
  59. FLUVASTATIN SODIUM [Concomitant]
     Dosage: UNK
     Route: 048

REACTIONS (15)
  - ANAEMIA [None]
  - ARTERIOGRAM CORONARY ABNORMAL [None]
  - BLOOD POTASSIUM DECREASED [None]
  - CONTUSION [None]
  - DRUG INEFFECTIVE [None]
  - DYSPNOEA [None]
  - FALL [None]
  - GAIT DISTURBANCE [None]
  - HYPOXIA [None]
  - ISCHAEMIC CEREBRAL INFARCTION [None]
  - LEUKOCYTOSIS [None]
  - PLEURAL EFFUSION [None]
  - POST PROCEDURAL COMPLICATION [None]
  - RALES [None]
  - TRANSIENT ISCHAEMIC ATTACK [None]
